FAERS Safety Report 7228814-3 (Version None)
Quarter: 2011Q1

REPORT INFORMATION
  Report Type: 
  Country: None (occurrence: None)
  Receive Date: 20110117
  Receipt Date: 20100223
  Transmission Date: 20110831
  Serious: No
  Sender: FDA-Public Use
  Company Number: 2010BI006338

PATIENT
  Sex: Female

DRUGS (4)
  1. TYSABRI [Suspect]
     Route: 042
     Dates: start: 20100113, end: 20100113
  2. SOLU-MEDROL [Concomitant]
     Indication: PREMEDICATION
     Route: 042
     Dates: start: 20110105, end: 20110105
  3. ATIVAN [Concomitant]
     Indication: PREMEDICATION
     Route: 042
     Dates: start: 20110105, end: 20110105
  4. TYSABRI [Suspect]
     Indication: MULTIPLE SCLEROSIS
     Route: 042
     Dates: start: 20100526, end: 20110105

REACTIONS (13)
  - DECREASED APPETITE [None]
  - CHEST DISCOMFORT [None]
  - PRURITUS [None]
  - RESPIRATORY TRACT CONGESTION [None]
  - EAR PRURITUS [None]
  - PALPITATIONS [None]
  - THROAT TIGHTNESS [None]
  - ERYTHEMA [None]
  - ASTHENIA [None]
  - HYPERSENSITIVITY [None]
  - THROAT IRRITATION [None]
  - COUGH [None]
  - ARTHRALGIA [None]
